FAERS Safety Report 23870772 (Version 1)
Quarter: 2024Q2

REPORT INFORMATION
  Report Type: Report from Study
  Country: US (occurrence: US)
  Receive Date: 20240518
  Receipt Date: 20240518
  Transmission Date: 20240715
  Serious: Yes (Other)
  Sender: FDA-Public Use
  Company Number: US-ABBVIE-5765029

PATIENT
  Sex: Female

DRUGS (1)
  1. QULIPTA [Suspect]
     Active Substance: ATOGEPANT
     Indication: Product used for unknown indication
     Dosage: ATOGEPANT 60MG TAB
     Route: 048
     Dates: start: 20240416

REACTIONS (7)
  - Neoplasm recurrence [Not Recovered/Not Resolved]
  - Aphasia [Unknown]
  - Tooth extraction [Recovering/Resolving]
  - Hiccups [Not Recovered/Not Resolved]
  - Tooth fracture [Unknown]
  - Seizure [Recovered/Resolved]
  - Hiccups [Recovered/Resolved]

NARRATIVE: CASE EVENT DATE: 20240101
